FAERS Safety Report 7163269-9 (Version None)
Quarter: 2010Q4

REPORT INFORMATION
  Report Type: 
  Country: None (occurrence: None)
  Receive Date: 20101215
  Receipt Date: 20100506
  Transmission Date: 20110411
  Serious: No
  Sender: FDA-Public Use
  Company Number: US-ABBOTT-10P-163-0643595-00

PATIENT
  Sex: Female
  Weight: 55.842 kg

DRUGS (1)
  1. HYTRIN [Suspect]
     Indication: HYPERTENSION

REACTIONS (1)
  - UNEVALUABLE EVENT [None]
